FAERS Safety Report 4648656-2 (Version None)
Quarter: 2005Q2

REPORT INFORMATION
  Report Type: 
  Country: None (occurrence: None)
  Receive Date: 20050427
  Receipt Date: 20050415
  Transmission Date: 20051028
  Serious: Yes (Other)
  Sender: FDA-Public Use
  Company Number: HQWYE081818APR05

PATIENT
  Age: 84 Year
  Sex: Male

DRUGS (1)
  1. CORDARONE [Suspect]
     Indication: ARRHYTHMIA
     Dosage: 200 MG 1X PER 1 DAY
     Route: 048
     Dates: start: 19920908, end: 19940316

REACTIONS (1)
  - HEPATITIS [None]
